FAERS Safety Report 16919276 (Version 2)
Quarter: 2020Q1

REPORT INFORMATION
  Report Type: Spontaneous
  Country: US (occurrence: US)
  Receive Date: 20191015
  Receipt Date: 20200102
  Transmission Date: 20200409
  Serious: Yes (Death)
  Sender: FDA-Public Use
  Company Number: US-PFIZER INC-2019443296

PATIENT
  Age: 92 Year
  Sex: Male
  Weight: 71.66 kg

DRUGS (1)
  1. LIPITOR [Suspect]
     Active Substance: ATORVASTATIN CALCIUM
     Dosage: UNK

REACTIONS (4)
  - Death [Fatal]
  - Drug hypersensitivity [Unknown]
  - Muscular weakness [Unknown]
  - Myalgia [Unknown]
